FAERS Safety Report 9300303 (Version 1)
Quarter: 2013Q2

REPORT INFORMATION
  Report Type: Report from Study
  Country: AR (occurrence: AR)
  Receive Date: 20130521
  Receipt Date: 20130521
  Transmission Date: 20140414
  Serious: Yes (Death)
  Sender: FDA-Public Use
  Company Number: PHHY2013AR050425

PATIENT
  Sex: Male

DRUGS (2)
  1. ONBREZ [Suspect]
     Indication: EMPHYSEMA
     Dosage: 150 UG, QD
  2. ONBREZ [Suspect]
     Indication: LUNG NEOPLASM MALIGNANT

REACTIONS (2)
  - Lung cancer metastatic [Fatal]
  - Cardio-respiratory arrest [Fatal]
